FAERS Safety Report 12200611 (Version 1)
Quarter: 2016Q1

REPORT INFORMATION
  Report Type: Spontaneous
  Country: US (occurrence: US)
  Receive Date: 20160322
  Receipt Date: 20160322
  Transmission Date: 20160526
  Serious: No
  Sender: FDA-Public Use
  Company Number: US-SA-2015SA176235

PATIENT

DRUGS (1)
  1. LEUKINE [Suspect]
     Active Substance: SARGRAMOSTIM
     Indication: ALVEOLAR PROTEINOSIS
     Dosage: FREQUENCY: INHALED DAILY FOR 7 DAYS, THEN 7 DAYS OFF TREATMENT; ANOTHER WEEK ON TREATMENT.
     Route: 055

REACTIONS (3)
  - Incorrect route of drug administration [Unknown]
  - Pharyngeal erythema [Unknown]
  - Off label use [Unknown]
